FAERS Safety Report 7693552-X (Version None)
Quarter: 2011Q3

REPORT INFORMATION
  Report Type: 
  Country: None (occurrence: None)
  Receive Date: 20110816
  Receipt Date: 20110802
  Transmission Date: 20111222
  Serious: Yes (Disabling)
  Sender: FDA-Public Use
  Company Number: AUR-APL-2011-04560

PATIENT
  Age: 54 Year
  Sex: Male

DRUGS (9)
  1. ISOPHANE INSULIN [Suspect]
     Indication: PRODUCT USED FOR UNKNOWN INDICATION
  2. METFORMIN HCL [Suspect]
     Indication: PRODUCT USED FOR UNKNOWN INDICATION
  3. DIPYRIDAMOLE [Suspect]
     Indication: PRODUCT USED FOR UNKNOWN INDICATION
  4. DIGOXIN [Suspect]
     Indication: PRODUCT USED FOR UNKNOWN INDICATION
  5. ASPIRIN [Suspect]
     Indication: PRODUCT USED FOR UNKNOWN INDICATION
  6. ONGLYZA [Suspect]
     Indication: TYPE 2 DIABETES MELLITUS
     Dosage: 5 MG (5 MG, 1 IN 1D),ORAL
     Route: 048
     Dates: start: 20101110, end: 20101204
  7. POTASSIUM CHLORIDE [Suspect]
     Indication: PRODUCT USED FOR UNKNOWN INDICATION
  8. FUROSEMIDE [Suspect]
     Indication: PRODUCT USED FOR UNKNOWN INDICATION
  9. CRESTOR [Suspect]
     Indication: PRODUCT USED FOR UNKNOWN INDICATION

REACTIONS (3)
  - HEADACHE [None]
  - FLUID RETENTION [None]
  - WEIGHT INCREASED [None]
